FAERS Safety Report 9252678 (Version 1)
Quarter: 2013Q1

REPORT INFORMATION
  Report Type: Spontaneous
  Country: US (occurrence: None)
  Receive Date: 20130305
  Receipt Date: 20130305
  Transmission Date: 20140127
  Serious: Yes (Hospitalization)
  Sender: FDA-Public Use
  Company Number: 163-21880-12042096 (0)

PATIENT
  Age: 75 Year
  Sex: Female

DRUGS (3)
  1. REVLIMID [Suspect]
     Indication: PLASMA CELL MYELOMA
     Dosage: DAILY ON DAYS 1-21
     Route: 048
     Dates: start: 201112
  2. THALOMID [Suspect]
     Dosage: #28
     Route: 048
     Dates: start: 201105, end: 201110
  3. STEROIDS [Concomitant]

REACTIONS (6)
  - Pyrexia [None]
  - Chills [None]
  - Plasma cell myeloma [None]
  - Pain [None]
  - Malaise [None]
  - White blood cell count decreased [None]
